FAERS Safety Report 13940681 (Version 3)
Quarter: 2018Q3

REPORT INFORMATION
  Report Type: Spontaneous
  Country: FI (occurrence: FI)
  Receive Date: 20170906
  Receipt Date: 20180712
  Transmission Date: 20181010
  Serious: Yes (Disabling)
  Sender: FDA-Public Use
  Company Number: FI-PFIZER INC-2017381284

PATIENT
  Age: 74 Year
  Sex: Male

DRUGS (5)
  1. EXELON [Concomitant]
     Active Substance: RIVASTIGMINE TARTRATE
     Indication: DEMENTIA ALZHEIMER^S TYPE
     Dosage: 9.5 MG, DAILY
     Route: 062
     Dates: start: 20130604
  2. DIFLUCAN [Suspect]
     Active Substance: FLUCONAZOLE
     Dosage: 1 ML, DAILY
     Route: 048
     Dates: start: 20170821, end: 20170827
  3. FINASTERID ORION [Concomitant]
     Indication: BENIGN PROSTATIC HYPERPLASIA
     Dosage: 5 MG, DAILY
     Route: 048
     Dates: start: 20150105
  4. DIFLUCAN [Suspect]
     Active Substance: FLUCONAZOLE
     Indication: ORAL FUNGAL INFECTION
     Dosage: 5 ML, DAILY (DAY 1)
     Route: 048
     Dates: start: 20170816, end: 20170816
  5. DIFLUCAN [Suspect]
     Active Substance: FLUCONAZOLE
     Dosage: 2.5 ML, DAILY
     Route: 048
     Dates: start: 20170817, end: 20170820

REACTIONS (5)
  - Insomnia [Recovered/Resolved]
  - Diarrhoea [Recovered/Resolved]
  - Restlessness [Recovered/Resolved]
  - Fatigue [Recovered/Resolved]
  - Aggression [Recovered/Resolved]

NARRATIVE: CASE EVENT DATE: 20170816
